FAERS Safety Report 16124074 (Version 2)
Quarter: 2019Q2

REPORT INFORMATION
  Report Type: Spontaneous
  Country: JP (occurrence: JP)
  Receive Date: 20190327
  Receipt Date: 20190422
  Transmission Date: 20190711
  Serious: Yes (Hospitalization)
  Sender: FDA-Public Use
  Company Number: JP-MYLANLABS-2019M1007360

PATIENT
  Age: 47 Year
  Sex: Female
  Weight: 51.2 kg

DRUGS (7)
  1. GASTER                             /00082102/ [Concomitant]
     Indication: ALLERGY PROPHYLAXIS
     Dosage: 20 MILLIGRAM, QD
     Route: 041
     Dates: start: 20180920, end: 20181212
  2. CARBOPLATIN INJ. 450MG ^NK^ [Suspect]
     Active Substance: CARBOPLATIN
     Indication: OVARIAN CANCER RECURRENT
     Dosage: 480 MILLIGRAM, Q3W
     Route: 041
     Dates: start: 20180920, end: 20181212
  3. PACLITAXEL. [Concomitant]
     Active Substance: PACLITAXEL
     Indication: OVARIAN CANCER RECURRENT
     Dosage: 260 MILLIGRAM, Q3W
     Route: 041
     Dates: start: 20180920, end: 20181212
  4. DEXART [Concomitant]
     Active Substance: DEXAMETHASONE SODIUM PHOSPHATE
     Indication: ALLERGY PROPHYLAXIS
     Dosage: 16.5 MILLIGRAM, QD
     Route: 041
     Dates: start: 20180920, end: 20181212
  5. ALOXI [Concomitant]
     Active Substance: PALONOSETRON HYDROCHLORIDE
     Indication: PROPHYLAXIS OF NAUSEA AND VOMITING
     Dosage: 0.75 MILLIGRAM, QD
     Route: 041
     Dates: start: 20180920, end: 20181212
  6. GOSHAJINKIGAN [Concomitant]
     Active Substance: HERBALS
     Indication: NEUROPATHY PERIPHERAL
     Dosage: 2.5 GRAM, TID
     Route: 048
     Dates: start: 20180920
  7. POLARAMINE [Concomitant]
     Active Substance: DEXCHLORPHENIRAMINE MALEATE
     Indication: ALLERGY PROPHYLAXIS
     Dosage: 5 MILLIGRAM, QD
     Route: 041
     Dates: end: 20181212

REACTIONS (1)
  - Anaphylactic shock [Recovered/Resolved]

NARRATIVE: CASE EVENT DATE: 20181212
